FAERS Safety Report 10212994 (Version 1)
Quarter: 2014Q2

REPORT INFORMATION
  Report Type: Report from Study
  Country: US (occurrence: US)
  Receive Date: 20140602
  Receipt Date: 20140602
  Transmission Date: 20141212
  Serious: Yes (Hospitalization)
  Sender: FDA-Public Use
  Company Number: US-AMGEN INC.-USACT2014039194

PATIENT
  Age: 5 Year
  Sex: Male
  Weight: 22.45 kg

DRUGS (23)
  1. ROMIPLOSTIM [Suspect]
     Indication: IMMUNE THROMBOCYTOPENIC PURPURA
     Dosage: 10 MG/KG, QWK
     Route: 058
     Dates: start: 20121204
  2. DEXTROMETHORPHAN W/PHENYLEPHRINE [Concomitant]
     Indication: HEADACHE
     Dosage: UNK UNK, AS NECESSARY
     Route: 048
     Dates: start: 20121011
  3. TYLENOL                            /00020001/ [Concomitant]
     Indication: HEADACHE
     Dosage: 352 MG, AS NECESSARY
     Route: 048
     Dates: start: 20130203
  4. TYLENOL                            /00020001/ [Concomitant]
     Indication: PYREXIA
  5. PENICILLIN V POTASSIUM [Concomitant]
     Indication: PROPHYLAXIS
     Dosage: 250 MG, BID
     Route: 048
     Dates: start: 20130213
  6. POLYTRIM [Concomitant]
     Indication: CONJUNCTIVITIS
     Dosage: 1 DROP, Q4H
     Route: 047
     Dates: start: 20130601, end: 20130806
  7. ZYRTEC [Concomitant]
     Indication: HEADACHE
     Dosage: 25 MG, QD
     Route: 048
     Dates: start: 20130715, end: 20130730
  8. PERIACTIN [Concomitant]
     Indication: HEADACHE
     Dosage: 75 MG, QHS
     Route: 048
     Dates: start: 20130823, end: 20130916
  9. ZOFRAN                             /00955301/ [Concomitant]
     Indication: ABDOMINAL PAIN UPPER
     Dosage: 3.4 ML, AS NECESSARY
     Route: 048
     Dates: start: 20130920, end: 20140524
  10. ZOFRAN                             /00955301/ [Concomitant]
     Indication: NAUSEA
  11. ELAVIL                             /00002202/ [Concomitant]
     Indication: HEADACHE
     Dosage: 0.2 ML, QHS
     Route: 048
     Dates: start: 20130923, end: 20131226
  12. CORTISONE [Concomitant]
     Indication: URTICARIA
     Dosage: UNK UNK, AS NECESSARY
     Route: 061
     Dates: start: 20131014, end: 20131110
  13. CORTISONE [Concomitant]
     Indication: PRURITUS
  14. BENADRYL                           /00000402/ [Concomitant]
     Indication: PROPHYLAXIS
     Dosage: 15 MG, QD
     Route: 048
     Dates: start: 20131111, end: 20140523
  15. BENADRYL                           /00000402/ [Concomitant]
     Indication: HYPERSENSITIVITY
  16. IMMUNOGLOBULIN                     /00025201/ [Concomitant]
     Indication: EPISTAXIS
     Dosage: 20 G, UNK
     Route: 042
     Dates: start: 20131112, end: 20140523
  17. IMMUNOGLOBULIN                     /00025201/ [Concomitant]
     Indication: PETECHIAE
  18. IMMUNOGLOBULIN                     /00025201/ [Concomitant]
     Indication: PLATELET COUNT DECREASED
  19. ZANTAC [Concomitant]
     Indication: GASTRIC ULCER
     Dosage: 45 MG, BID
     Route: 048
     Dates: start: 20131113
  20. DEXTROSE W/POTASSIUM CHLORIDE/SODIUM CHLORIDE [Concomitant]
     Indication: FLUID REPLACEMENT
     Dosage: 62 ML/HR, ONE TIME DOSE
     Route: 042
     Dates: start: 20131114
  21. INFLUENZA VACCINE [Concomitant]
     Indication: PROPHYLAXIS
     Dosage: UNK
     Route: 045
     Dates: start: 201309, end: 201309
  22. MOTRIN [Concomitant]
     Indication: PYREXIA
     Dosage: 220 MG, ONE TIME DOSE
     Route: 048
     Dates: start: 20131227, end: 20131227
  23. ROCEPHIN [Concomitant]
     Indication: PYREXIA
     Dosage: 1120 MG, QD
     Route: 042
     Dates: start: 20131227

REACTIONS (2)
  - Pyrexia [Recovering/Resolving]
  - Viral infection [Recovered/Resolved]
